FAERS Safety Report 8608790 (Version 4)
Quarter: 2014Q1

REPORT INFORMATION
  Report Type: Report from Study
  Country: BE (occurrence: BE)
  Receive Date: 20120611
  Receipt Date: 20140121
  Transmission Date: 20141002
  Serious: Yes (Other)
  Sender: FDA-Public Use
  Company Number: BE-BRISTOL-MYERS SQUIBB COMPANY-16654394

PATIENT
  Age: 61 Year
  Sex: Male

DRUGS (1)
  1. YERVOY [Suspect]
     Indication: METASTATIC MALIGNANT MELANOMA
     Dosage: DOSE 240MG?2ND INF 17JAN12,3RD INF 3FEB12,4TH INF 2MAR12
     Dates: start: 20111227

REACTIONS (2)
  - Herpes zoster [Recovering/Resolving]
  - Hypersensitivity [Recovering/Resolving]
